FAERS Safety Report 7754198-8 (Version None)
Quarter: 2011Q3

REPORT INFORMATION
  Report Type: 
  Country: None (occurrence: None)
  Receive Date: 20110915
  Receipt Date: 20110802
  Transmission Date: 20111222
  Serious: Yes (Hospitalization, Other)
  Sender: FDA-Public Use
  Company Number: PHHY2011US64814

PATIENT
  Sex: Female

DRUGS (7)
  1. FOSAMAX [Suspect]
     Dosage: UNK UKN, UNK
  2. SIMVASTATIN [Concomitant]
     Indication: BLOOD CHOLESTEROL INCREASED
     Dosage: UNK UKN, UNK
  3. BONIVA [Suspect]
     Dosage: UNK UKN, UNK
  4. ACTONEL [Suspect]
     Dosage: UNK UKN, UNK
  5. RECLAST [Suspect]
     Dosage: UNK UKN, UNK
     Route: 042
  6. POTASSIUM [Concomitant]
     Dosage: UNK UKN, UNK
  7. COUMADIN [Concomitant]
     Dosage: UNK UKN, UNK

REACTIONS (6)
  - HYPERTENSION [None]
  - GAIT DISTURBANCE [None]
  - CARDIAC DISORDER [None]
  - ATRIAL FIBRILLATION [None]
  - HEART RATE IRREGULAR [None]
  - NEOPLASM MALIGNANT [None]
